FAERS Safety Report 16117021 (Version 2)
Quarter: 2019Q3

REPORT INFORMATION
  Report Type: Spontaneous
  Country: US (occurrence: US)
  Receive Date: 20190326
  Receipt Date: 20190715
  Transmission Date: 20191004
  Serious: No
  Sender: FDA-Public Use
  Company Number: US-PFIZER INC-2019125253

PATIENT
  Age: 67 Year
  Sex: Female

DRUGS (2)
  1. EUCRISA [Suspect]
     Active Substance: CRISABOROLE
     Indication: ERYTHEMA
     Dosage: UNK, 2X/DAY (APPLY TO AFFECTED AREAS TWICE A DAY)
  2. EUCRISA [Suspect]
     Active Substance: CRISABOROLE
     Dosage: UNK
     Dates: start: 201901

REACTIONS (3)
  - Drug ineffective [Recovered/Resolved]
  - Erythema [Recovered/Resolved]
  - Skin disorder [Recovered/Resolved]
